FAERS Safety Report 8493259-5 (Version None)
Quarter: 2012Q3

REPORT INFORMATION
  Report Type: 
  Country: None (occurrence: None)
  Receive Date: 20120706
  Receipt Date: 20120705
  Transmission Date: 20120928
  Serious: Yes (Hospitalization)
  Sender: FDA-Public Use
  Company Number: JP-JNJFOC-20120512639

PATIENT
  Sex: Female
  Weight: 63 kg

DRUGS (11)
  1. INVEGA [Suspect]
     Indication: SCHIZOPHRENIA, PARANOID TYPE
     Route: 048
     Dates: start: 20111212, end: 20111221
  2. LONASEN [Concomitant]
     Indication: SCHIZOPHRENIA, PARANOID TYPE
     Route: 048
     Dates: start: 20111128, end: 20111221
  3. QUAZEPAM [Concomitant]
     Indication: SCHIZOPHRENIA, PARANOID TYPE
     Route: 048
     Dates: end: 20111221
  4. INVEGA [Suspect]
     Route: 048
     Dates: start: 20111115, end: 20111127
  5. VALPROATE SODIUM [Concomitant]
     Indication: SCHIZOPHRENIA, PARANOID TYPE
     Route: 048
     Dates: end: 20111221
  6. AKINETON [Concomitant]
     Indication: OCULOGYRIC CRISIS
     Route: 048
     Dates: start: 20111104, end: 20111221
  7. LONASEN [Concomitant]
     Route: 048
     Dates: start: 20111101, end: 20111127
  8. ROHYPNOL [Concomitant]
     Indication: SCHIZOPHRENIA, PARANOID TYPE
     Route: 048
     Dates: end: 20111221
  9. INVEGA [Suspect]
     Route: 048
     Dates: start: 20111104, end: 20111114
  10. INVEGA [Suspect]
     Route: 048
     Dates: start: 20111128, end: 20111211
  11. LORAZEPAM [Concomitant]
     Indication: SCHIZOPHRENIA, PARANOID TYPE
     Route: 048
     Dates: end: 20111221

REACTIONS (1)
  - PARANOIA [None]
